FAERS Safety Report 18493094 (Version 1)
Quarter: 2020Q4

REPORT INFORMATION
  Report Type: Report from Study
  Country: CO (occurrence: CO)
  Receive Date: 20201112
  Receipt Date: 20201112
  Transmission Date: 20210114
  Serious: Yes (Hospitalization)
  Sender: FDA-Public Use
  Company Number: CO-TAKEDA-CO201941976

PATIENT
  Age: 40 Year
  Sex: Female
  Weight: 35 kg

DRUGS (1)
  1. VPRIV [Suspect]
     Active Substance: VELAGLUCERASE ALFA
     Indication: GAUCHER^S DISEASE
     Dosage: 400 INTERNATIONAL UNIT
     Route: 065
     Dates: start: 20171007

REACTIONS (3)
  - Inflammation [Recovering/Resolving]
  - Weight decreased [Unknown]
  - Influenza [Recovering/Resolving]

NARRATIVE: CASE EVENT DATE: 20191130
